FAERS Safety Report 13601718 (Version 5)
Quarter: 2018Q3

REPORT INFORMATION
  Report Type: Spontaneous
  Country: DE (occurrence: DE)
  Receive Date: 20170601
  Receipt Date: 20180702
  Transmission Date: 20181010
  Serious: Yes (Hospitalization, Disabling)
  Sender: FDA-Public Use
  Company Number: DE-009507513-1705DEU015167

PATIENT
  Age: 45 Year
  Sex: Male
  Weight: 75 kg

DRUGS (3)
  1. QUETIAPINE FUMARATE. [Concomitant]
     Active Substance: QUETIAPINE FUMARATE
     Dosage: 100 MG, FOR THE NIGHT
  2. PROPECIA [Suspect]
     Active Substance: FINASTERIDE
     Indication: ANDROGENETIC ALOPECIA
     Dosage: 0.5 MG TO 1 MG, UNK
     Route: 048
     Dates: start: 199901, end: 2012
  3. CITALOPRAM [Concomitant]
     Active Substance: CITALOPRAM HYDROBROMIDE
     Dosage: 15 MG, IN THE MORNING

REACTIONS (56)
  - Malaise [Unknown]
  - Hunger [Not Recovered/Not Resolved]
  - Constipation [Not Recovered/Not Resolved]
  - Libido decreased [Unknown]
  - Blood cholesterol increased [Unknown]
  - Tinnitus [Unknown]
  - Skin atrophy [Unknown]
  - Muscle disorder [Not Recovered/Not Resolved]
  - Dry skin [Unknown]
  - Hyperhidrosis [Unknown]
  - Initial insomnia [Unknown]
  - Androgen deficiency [Not Recovered/Not Resolved]
  - Mental disorder [Not Recovered/Not Resolved]
  - Headache [Not Recovered/Not Resolved]
  - Gamma-glutamyltransferase increased [Unknown]
  - Peyronie^s disease [Unknown]
  - Apathy [Unknown]
  - Reading disorder [Unknown]
  - Myalgia [Unknown]
  - Genital atrophy [Unknown]
  - Feeling abnormal [Unknown]
  - Hypotrichosis [Unknown]
  - Panic attack [Not Recovered/Not Resolved]
  - Hypogonadism [Not Recovered/Not Resolved]
  - Visual impairment [Not Recovered/Not Resolved]
  - Mood altered [Unknown]
  - Weight increased [Unknown]
  - Pollakiuria [Unknown]
  - Facial asymmetry [Unknown]
  - Restlessness [Not Recovered/Not Resolved]
  - Cerebral disorder [Unknown]
  - Fatigue [Unknown]
  - Genital hypoaesthesia [Unknown]
  - Arthralgia [Unknown]
  - Palpitations [Unknown]
  - Hypersomnia [Unknown]
  - Withdrawal syndrome [Not Recovered/Not Resolved]
  - Sensory processing disorder [Unknown]
  - Tremor [Not Recovered/Not Resolved]
  - Memory impairment [Unknown]
  - Hair colour changes [Unknown]
  - Gynaecomastia [Unknown]
  - Anxiety [Not Recovered/Not Resolved]
  - Tension [Not Recovered/Not Resolved]
  - Sleep disorder [Not Recovered/Not Resolved]
  - Penis disorder [Unknown]
  - Bradyphrenia [Unknown]
  - Muscular weakness [Unknown]
  - Disorientation [Unknown]
  - Body fat disorder [Unknown]
  - Urinary incontinence [Unknown]
  - Night sweats [Not Recovered/Not Resolved]
  - Listless [Unknown]
  - Illogical thinking [Unknown]
  - Muscle atrophy [Unknown]
  - Hair texture abnormal [Unknown]

NARRATIVE: CASE EVENT DATE: 2011
